FAERS Safety Report 13814343 (Version 1)
Quarter: 2017Q3

REPORT INFORMATION
  Report Type: Spontaneous
  Country: US (occurrence: US)
  Receive Date: 20170728
  Receipt Date: 20170728
  Transmission Date: 20171127
  Serious: No
  Sender: FDA-Public Use
  Company Number: None

PATIENT
  Age: 58 Year
  Sex: Male
  Weight: 76.66 kg

DRUGS (1)
  1. LEDIPASVIR/SOFOSBUVIR [Suspect]
     Active Substance: LEDIPASVIR\SOFOSBUVIR
     Indication: HEPATITIS C VIRUS TEST
     Dosage: 90/400MG
     Route: 048
     Dates: start: 20170630, end: 20170717

REACTIONS (5)
  - Balance disorder [None]
  - Loss of consciousness [None]
  - Confusional state [None]
  - Memory impairment [None]
  - Fall [None]

NARRATIVE: CASE EVENT DATE: 20170717
